FAERS Safety Report 4875173-7 (Version None)
Quarter: 2006Q1

REPORT INFORMATION
  Report Type: 
  Country: None (occurrence: None)
  Receive Date: 20060104
  Receipt Date: 20051222
  Transmission Date: 20060701
  Serious: Yes (Other)
  Sender: FDA-Public Use
  Company Number: 2005168295

PATIENT
  Age: 53 Year
  Sex: Female

DRUGS (9)
  1. GEODON [Suspect]
     Indication: ILL-DEFINED DISORDER
     Dosage: 40 MG (20 MG, 2 IN 1 D),
  2. PAXIL [Suspect]
     Indication: ILL-DEFINED DISORDER
  3. FLUOXETINE [Concomitant]
  4. METFORMIN HCL [Concomitant]
  5. PROTONIX [Concomitant]
  6. PROPRANOLOL [Concomitant]
  7. LIPITOR [Concomitant]
  8. ZOCOR [Concomitant]
  9. ALL OTHER THERAPEUTIC PRODUCTS (ALL OTHER THERAPEUTIC PRODUCTS) [Concomitant]

REACTIONS (9)
  - BLOOD PRESSURE SYSTOLIC INCREASED [None]
  - BRADYCARDIA [None]
  - HYPONATRAEMIA [None]
  - LONG QT SYNDROME [None]
  - LOSS OF CONSCIOUSNESS [None]
  - TORSADE DE POINTES [None]
  - VENTRICULAR TACHYCARDIA [None]
  - VIRAL INFECTION [None]
  - VOMITING [None]
